FAERS Safety Report 6709949-8 (Version None)
Quarter: 2010Q2

REPORT INFORMATION
  Report Type: 
  Country: None (occurrence: None)
  Receive Date: 20100429
  Receipt Date: 20100420
  Transmission Date: 20101027
  Serious: Yes (Other)
  Sender: FDA-Public Use
  Company Number: 006385

PATIENT
  Sex: Female
  Weight: 85 kg

DRUGS (2)
  1. KEPPRA [Suspect]
     Indication: GENERALISED NON-CONVULSIVE EPILEPSY
     Dosage: 500 MG BID ORAL
     Route: 048
  2. DEPAKENE [Suspect]
     Indication: GENERALISED NON-CONVULSIVE EPILEPSY
     Dosage: 2500 MG, 2500 MG ORAL
     Route: 048
     Dates: start: 20081001

REACTIONS (2)
  - MATERNAL DRUGS AFFECTING FOETUS [None]
  - TALIPES [None]
